FAERS Safety Report 25929133 (Version 2)
Quarter: 2025Q4

REPORT INFORMATION
  Report Type: Spontaneous
  Country: EU (occurrence: EU)
  Receive Date: 20251016
  Receipt Date: 20251118
  Transmission Date: 20260117
  Serious: Yes (Other)
  Sender: TEVA
  Company Number: EU-TEVA-VS-3381676

PATIENT
  Age: 55 Year
  Sex: Female

DRUGS (6)
  1. METHOTREXATE [Suspect]
     Active Substance: METHOTREXATE
     Indication: Rheumatoid arthritis
     Route: 065
     Dates: start: 2018, end: 2019
  2. RITUXIMAB [Suspect]
     Active Substance: RITUXIMAB
     Indication: Systemic lupus erythematosus
     Route: 065
     Dates: start: 2019
  3. MYCOPHENOLATE MOFETIL [Suspect]
     Active Substance: MYCOPHENOLATE MOFETIL
     Indication: Systemic lupus erythematosus
     Route: 065
     Dates: start: 2019
  4. Immunoglobulins [Concomitant]
     Indication: Pleuropericarditis
     Route: 042
     Dates: start: 201910
  5. HYDROXYCHLOROQUINE [Concomitant]
     Active Substance: HYDROXYCHLOROQUINE
     Indication: Systemic lupus erythematosus
     Route: 065
     Dates: start: 2019
  6. SULFASALAZINE [Concomitant]
     Active Substance: SULFASALAZINE
     Indication: Rheumatoid arthritis
     Route: 065
     Dates: start: 2018

REACTIONS (1)
  - Granulocytopenia [Recovering/Resolving]

NARRATIVE: CASE EVENT DATE: 20240101
